FAERS Safety Report 9274784 (Version 1)
Quarter: 2013Q2

REPORT INFORMATION
  Report Type: Spontaneous
  Country: IT (occurrence: IT)
  Receive Date: 20130507
  Receipt Date: 20130507
  Transmission Date: 20140414
  Serious: Yes (Other)
  Sender: FDA-Public Use
  Company Number: IT-ACCORD-017444

PATIENT
  Age: 70 Year
  Sex: Male
  Weight: 50 kg

DRUGS (6)
  1. GEMCITABINE [Suspect]
     Indication: LUNG ADENOCARCINOMA
     Route: 042
     Dates: start: 20130117, end: 20130207
  2. CISPLATIN [Suspect]
     Indication: LUNG ADENOCARCINOMA
     Dates: start: 20130117, end: 20130207
  3. SOLDESAM [Concomitant]
     Route: 042
     Dates: start: 20130117, end: 20130207
  4. ONDANSETRON [Concomitant]
     Route: 042
     Dates: start: 20130117, end: 20130207
  5. RANIDIL [Concomitant]
     Route: 042
     Dates: start: 20130117, end: 20130207
  6. LASIX [Concomitant]
     Route: 042
     Dates: start: 20130117, end: 20130207

REACTIONS (4)
  - Incontinence [Recovering/Resolving]
  - Constipation [Recovering/Resolving]
  - Hyperpyrexia [Recovering/Resolving]
  - Pain in extremity [Recovering/Resolving]
